FAERS Safety Report 9745554 (Version 1)
Quarter: 2013Q4

REPORT INFORMATION
  Report Type: Spontaneous
  Country: US (occurrence: US)
  Receive Date: 20131211
  Receipt Date: 20131211
  Transmission Date: 20140711
  Serious: Yes (Other)
  Sender: FDA-Public Use
  Company Number: US-DRAFT-US-2013-12282

PATIENT
  Sex: 0

DRUGS (2)
  1. BUSULFEX [Suspect]
     Indication: STEM CELL TRANSPLANT
     Dosage: 6.4 MG/KG, UNK
     Route: 042
  2. FLUDARABINE [Suspect]
     Indication: STEM CELL TRANSPLANT
     Dosage: 120 UNK, UNK
     Route: 042

REACTIONS (1)
  - Supraventricular tachycardia [Unknown]
